FAERS Safety Report 4422940-X (Version None)
Quarter: 2004Q3

REPORT INFORMATION
  Report Type: 
  Country: None (occurrence: None)
  Receive Date: 20040811
  Receipt Date: 20040804
  Transmission Date: 20050211
  Serious: Yes (Hospitalization)
  Sender: FDA-Public Use
  Company Number: US-JNJFOC-20040801625

PATIENT
  Age: 44 Year
  Sex: Female

DRUGS (6)
  1. DURAGESIC [Suspect]
     Route: 062
     Dates: start: 20040401, end: 20040501
  2. LEXAPRO [Concomitant]
     Indication: DEPRESSION
     Route: 049
  3. AMBIEN [Concomitant]
     Indication: SLEEP DISORDER
     Route: 049
  4. VICODIN [Concomitant]
     Route: 049
  5. VICODIN [Concomitant]
     Indication: PAIN
     Route: 049
  6. NEXIUM [Concomitant]
     Route: 049

REACTIONS (6)
  - DIARRHOEA [None]
  - JOINT SWELLING [None]
  - MALAISE [None]
  - NAUSEA [None]
  - PERITONITIS [None]
  - RUPTURED DIVERTICULUM OF COLON [None]
